FAERS Safety Report 8470740-6 (Version None)
Quarter: 2012Q2

REPORT INFORMATION
  Report Type: 
  Country: None (occurrence: None)
  Receive Date: 20120627
  Receipt Date: 20120620
  Transmission Date: 20120825
  Serious: No
  Sender: FDA-Public Use
  Company Number: US-B.I. PHARMACEUTICALS,INC./RIDGEFIELD-2012-BP-14147BP

PATIENT
  Sex: Female

DRUGS (1)
  1. AGGRENOX [Suspect]
     Indication: THROMBOSIS PROPHYLAXIS
     Route: 048
     Dates: start: 20120618, end: 20120619

REACTIONS (2)
  - PRURITUS GENERALISED [None]
  - FLUSHING [None]
